FAERS Safety Report 9180790 (Version 1)
Quarter: 2013Q1

REPORT INFORMATION
  Report Type: Spontaneous
  Country: CZ (occurrence: CZ)
  Receive Date: 20130322
  Receipt Date: 20130322
  Transmission Date: 20140127
  Serious: Yes (Other)
  Sender: FDA-Public Use
  Company Number: CZ-JNJFOC-20130307378

PATIENT
  Age: 12 Year
  Sex: Female

DRUGS (4)
  1. REMICADE [Suspect]
     Indication: COLITIS ULCERATIVE
     Dosage: THIRD INFUSION
     Route: 042
     Dates: start: 20130204
  2. REMICADE [Suspect]
     Indication: COLITIS ULCERATIVE
     Dosage: 2ND INFUSION
     Route: 042
  3. REMICADE [Suspect]
     Indication: COLITIS ULCERATIVE
     Route: 042
     Dates: start: 20121213
  4. METHOTREXATE [Concomitant]
     Route: 065

REACTIONS (5)
  - Cardiac septal hypertrophy [Unknown]
  - Tachycardia [Not Recovered/Not Resolved]
  - Hypertension [Unknown]
  - Infusion related reaction [Unknown]
  - Anaemia [Unknown]
